FAERS Safety Report 6984920 (Version 2)
Quarter: 2014Q2

REPORT INFORMATION
  Report Type: Spontaneous
  Country: US (occurrence: US)
  Receive Date: 20090501
  Receipt Date: 20140411
  Transmission Date: 20141212
  Serious: Yes (Hospitalization)
  Sender: FDA-Public Use
  Company Number: US-ALEXION-A200900110

PATIENT
  Age: 74 Year
  Sex: Female

DRUGS (8)
  1. SOLIRIS 300MG [Suspect]
     Indication: PAROXYSMAL NOCTURNAL HAEMOGLOBINURIA
     Dosage: 600 MG, QW
     Route: 042
     Dates: start: 20081023, end: 200811
  2. SOLIRIS 300MG [Suspect]
     Dosage: 900 MG Q2W
     Route: 042
     Dates: start: 20081120
  3. FOLIC ACID [Concomitant]
     Indication: PAROXYSMAL NOCTURNAL HAEMOGLOBINURIA
     Dosage: 5 MG, QD
     Route: 048
  4. NEUPOGEN [Concomitant]
     Indication: PAROXYSMAL NOCTURNAL HAEMOGLOBINURIA
     Dosage: 480 MCG, QD
  5. HYDROCODONE [Concomitant]
     Dosage: UNK
     Route: 048
  6. PREDNISONE [Concomitant]
     Indication: PAROXYSMAL NOCTURNAL HAEMOGLOBINURIA
     Dosage: 5 MG, QOD
     Route: 048
  7. WELCHOL [Concomitant]
     Indication: BLOOD CHOLESTEROL
     Dosage: UNK
     Route: 048
  8. FLUCONAZOLE [Concomitant]
     Dosage: 100 MG, QD
     Route: 048

REACTIONS (8)
  - Febrile neutropenia [Unknown]
  - Pseudomonal bacteraemia [Unknown]
  - Sinusitis [Recovered/Resolved]
  - Sepsis [Unknown]
  - Chills [Unknown]
  - Fatigue [Unknown]
  - Unevaluable event [Unknown]
  - Drug ineffective [Not Recovered/Not Resolved]
